FAERS Safety Report 11774439 (Version 1)
Quarter: 2015Q4

REPORT INFORMATION
  Report Type: Spontaneous
  Country: FR (occurrence: FR)
  Receive Date: 20151124
  Receipt Date: 20151124
  Transmission Date: 20160304
  Serious: Yes (Death, Disabling)
  Sender: FDA-Public Use
  Company Number: FR-FRESENIUS KABI-FK201506093

PATIENT
  Age: 72 Year
  Sex: Male

DRUGS (4)
  1. CISPLATIN ACCORD [Suspect]
     Active Substance: CISPLATIN
     Indication: LARGE CELL LUNG CANCER
     Route: 042
     Dates: start: 20140317, end: 20140715
  2. PACLITAXEL 6MG/ML CONCENTRATE FOR SOLUTION FOR INFUSION [Suspect]
     Active Substance: PACLITAXEL
     Indication: LARGE CELL LUNG CANCER
     Route: 042
     Dates: start: 20150716, end: 20150826
  3. ETOPOSIDE MYLAN [Suspect]
     Active Substance: ETOPOSIDE
     Indication: LARGE CELL LUNG CANCER
     Route: 042
     Dates: start: 20140317, end: 20150604
  4. CARBOPLATIN KABI [Suspect]
     Active Substance: CARBOPLATIN
     Indication: LARGE CELL LUNG CANCER
     Route: 042
     Dates: start: 20150330, end: 20150601

REACTIONS (1)
  - Paralysis [Not Recovered/Not Resolved]

NARRATIVE: CASE EVENT DATE: 20150905
